FAERS Safety Report 11043070 (Version 1)
Quarter: 2015Q2

REPORT INFORMATION
  Report Type: Spontaneous
  Country: US (occurrence: None)
  Receive Date: 20150416
  Receipt Date: 20150416
  Transmission Date: 20150821
  Serious: Yes (Hospitalization)
  Sender: FDA-Public Use
  Company Number: None

PATIENT
  Sex: Male

DRUGS (1)
  1. ATORVASTATIN [Suspect]
     Active Substance: ATORVASTATIN
     Route: 048
     Dates: start: 20130117, end: 20141221

REACTIONS (10)
  - Atelectasis [None]
  - Acute kidney injury [None]
  - Hyperkalaemia [None]
  - Supraventricular tachycardia [None]
  - Atrial fibrillation [None]
  - Enterobacter pneumonia [None]
  - Lactic acidosis [None]
  - Pneumonia aspiration [None]
  - Rhabdomyolysis [None]
  - Respiratory failure [None]

NARRATIVE: CASE EVENT DATE: 20141219
